FAERS Safety Report 17186800 (Version 1)
Quarter: 2019Q4

REPORT INFORMATION
  Report Type: Spontaneous
  Country: US (occurrence: US)
  Receive Date: 20191220
  Receipt Date: 20191220
  Transmission Date: 20200122
  Serious: Yes (Other)
  Sender: FDA-Public Use
  Company Number: US-PFIZER INC-2015066190

PATIENT
  Age: 72 Year
  Sex: Male

DRUGS (1)
  1. SKELAXIN [Suspect]
     Active Substance: METAXALONE
     Dosage: 800 MG, 2X/DAY (TAKE 1 TO 2 TABS PO BID PRN)

REACTIONS (4)
  - Hernia [Unknown]
  - Back pain [Unknown]
  - Arthritis [Unknown]
  - Product prescribing error [Unknown]
